FAERS Safety Report 6537066-9 (Version None)
Quarter: 2010Q1

REPORT INFORMATION
  Report Type: 
  Country: None (occurrence: None)
  Receive Date: 20100114
  Receipt Date: 20100107
  Transmission Date: 20100710
  Serious: Yes (Hospitalization)
  Sender: FDA-Public Use
  Company Number: FR-BIOGENIDEC-2009BI041146

PATIENT
  Age: 53 Year
  Sex: Female

DRUGS (9)
  1. TYSABRI [Suspect]
     Indication: MULTIPLE SCLEROSIS
     Route: 042
     Dates: start: 20080717, end: 20091202
  2. XATRAL LP [Concomitant]
     Route: 048
  3. URISPAS [Concomitant]
     Route: 048
  4. RIVOTRIL [Concomitant]
     Route: 048
  5. ALPRAZOLAM [Concomitant]
     Route: 048
  6. ATARAX [Concomitant]
     Route: 048
  7. PAROXETINE HCL [Concomitant]
     Route: 048
  8. DIANTALVIC [Concomitant]
     Route: 048
  9. EDUCTYL [Concomitant]
     Route: 054

REACTIONS (4)
  - DEPRESSION [None]
  - MULTIPLE SCLEROSIS RELAPSE [None]
  - PROGRESSIVE MULTIFOCAL LEUKOENCEPHALOPATHY [None]
  - SENSORY DISTURBANCE [None]
